FAERS Safety Report 26089919 (Version 1)
Quarter: 2025Q4

REPORT INFORMATION
  Report Type: Spontaneous
  Country: EU (occurrence: EU)
  Receive Date: 20251126
  Receipt Date: 20251126
  Transmission Date: 20260118
  Serious: Yes (Death, Life-Threatening, Other)
  Sender: PHARMOBEDIENT CONSULTING, LLC
  Company Number: EU-Pharmobedient-000331

PATIENT
  Age: 70 Year
  Sex: Female
  Weight: 117 kg

DRUGS (5)
  1. METFORMIN HYDROCHLORIDE [Suspect]
     Active Substance: METFORMIN HYDROCHLORIDE
     Indication: Product used for unknown indication
     Dosage: 500 MG AT 8 A.M., 1,000 MG AT 1 P.M., AND 1,000 MG AT 7 P.M
  2. INSULIN NOS [Concomitant]
     Active Substance: INSULIN NOS
     Indication: Product used for unknown indication
     Dosage: THREE OR MORE TIMES PER DAY
  3. IRBESARTAN [Concomitant]
     Active Substance: IRBESARTAN
     Indication: Product used for unknown indication
  4. FUROSEMIDE [Concomitant]
     Active Substance: FUROSEMIDE
     Indication: Product used for unknown indication
  5. INSULIN NOS [Concomitant]
     Active Substance: INSULIN NOS
     Indication: Product used for unknown indication
     Dosage: 5 UNITS, THREE OR MORE TIMES PER DAY

REACTIONS (6)
  - Toxicity to various agents [Fatal]
  - Lactic acidosis [Fatal]
  - Cardio-respiratory arrest [Fatal]
  - Ocular icterus [Unknown]
  - Hyperkalaemia [Unknown]
  - Overdose [Fatal]
